FAERS Safety Report 15476242 (Version 1)
Quarter: 2018Q4

REPORT INFORMATION
  Report Type: Spontaneous
  Country: JP (occurrence: JP)
  Receive Date: 20181009
  Receipt Date: 20181009
  Transmission Date: 20190205
  Serious: Yes (Other)
  Sender: FDA-Public Use
  Company Number: PHJP2018JP016786

PATIENT
  Age: 69 Year
  Sex: Male

DRUGS (4)
  1. BAYASPIRIN [Concomitant]
     Active Substance: ASPIRIN
     Indication: VASCULAR GRAFT
     Dosage: UNK
     Route: 048
  2. RINDERON V [Concomitant]
     Active Substance: BETAMETHASONE VALERATE
     Indication: POSTOPERATIVE CARE
     Dosage: 1 GTT, QID
     Route: 047
     Dates: start: 20180918, end: 20180925
  3. VEGAMOX OPHTHALMIC SOLUTION 0.5% [Suspect]
     Active Substance: MOXIFLOXACIN HYDROCHLORIDE
     Indication: POSTOPERATIVE CARE
     Dosage: UNK UNK, QID
     Route: 047
     Dates: start: 20180917, end: 20180925
  4. NEVANAC [Suspect]
     Active Substance: NEPAFENAC
     Indication: POSTOPERATIVE CARE
     Dosage: UNK UNK, TID
     Route: 047
     Dates: start: 20180917, end: 20180919

REACTIONS (5)
  - Abnormal sensation in eye [Unknown]
  - Ocular hyperaemia [Unknown]
  - Corneal disorder [Recovered/Resolved]
  - Eye discharge [Unknown]
  - Corneal epithelium defect [Unknown]

NARRATIVE: CASE EVENT DATE: 20180918
